FAERS Safety Report 5348535-1 (Version None)
Quarter: 2007Q2

REPORT INFORMATION
  Report Type: 
  Country: None (occurrence: None)
  Receive Date: 20070606
  Receipt Date: 20070528
  Transmission Date: 20071010
  Serious: Yes (Other)
  Sender: FDA-Public Use
  Company Number: JP-PFIZER INC-2007043464

PATIENT
  Age: 82 Year
  Sex: Female

DRUGS (3)
  1. NORVASC [Suspect]
     Indication: HYPERTENSION
     Dosage: DAILY DOSE:5MG
     Route: 048
  2. THEO-DUR [Concomitant]
     Route: 048
  3. BLOPRESS [Concomitant]
     Indication: HYPERTENSION
     Dosage: DAILY DOSE:12MG

REACTIONS (1)
  - LOSS OF CONSCIOUSNESS [None]
